FAERS Safety Report 8100984-4 (Version None)
Quarter: 2012Q1

REPORT INFORMATION
  Report Type: 
  Country: None (occurrence: None)
  Receive Date: 20120129
  Receipt Date: 20111122
  Transmission Date: 20120608
  Serious: No
  Sender: FDA-Public Use
  Company Number: US-ABBOTT-11P-163-0877125-00

PATIENT
  Sex: Female
  Weight: 96.248 kg

DRUGS (8)
  1. VITAMIN  D WITH OMEGA 3 [Concomitant]
     Indication: VITAMIN SUPPLEMENTATION
  2. CENTRUM [Concomitant]
     Indication: VITAMIN SUPPLEMENTATION
  3. HUMIRA [Suspect]
     Indication: PSORIATIC ARTHROPATHY
  4. HUMIRA [Suspect]
     Indication: PSORIASIS
     Dates: end: 20111101
  5. TYLENOL PM [Concomitant]
     Indication: SLEEP DISORDER THERAPY
  6. METFORMIN HCL [Concomitant]
     Indication: DIABETES MELLITUS
  7. GABAPENTIN [Concomitant]
     Indication: NEUROPATHY PERIPHERAL
  8. FOLIC ACID [Concomitant]
     Indication: VITAMIN SUPPLEMENTATION

REACTIONS (2)
  - DRUG INEFFECTIVE [None]
  - JOINT STIFFNESS [None]
